FAERS Safety Report 16053862 (Version 2)
Quarter: 2019Q2

REPORT INFORMATION
  Report Type: Report from Study
  Country: US (occurrence: US)
  Receive Date: 20190308
  Receipt Date: 20190502
  Transmission Date: 20190711
  Serious: Yes (Other)
  Sender: FDA-Public Use
  Company Number: PHEH2018US056030

PATIENT
  Age: 71 Year
  Sex: Male

DRUGS (1)
  1. KYMRIAH [Suspect]
     Active Substance: TISAGENLECLEUCEL
     Indication: DIFFUSE LARGE B-CELL LYMPHOMA
     Dosage: ONCE/SINGLE
     Route: 042
     Dates: start: 20180618

REACTIONS (4)
  - Weight decreased [Unknown]
  - Diffuse large B-cell lymphoma recurrent [Recovering/Resolving]
  - Cytokine release syndrome [Unknown]
  - Malignant neoplasm progression [Recovering/Resolving]

NARRATIVE: CASE EVENT DATE: 20180618
